FAERS Safety Report 6636127-3 (Version None)
Quarter: 2010Q1

REPORT INFORMATION
  Report Type: 
  Country: None (occurrence: None)
  Receive Date: 20100309
  Receipt Date: 20100222
  Transmission Date: 20100710
  Serious: Yes (Hospitalization)
  Sender: FDA-Public Use
  Company Number: DSA_42695_2010

PATIENT
  Age: 3 Year
  Sex: Female
  Weight: 8.3 kg

DRUGS (3)
  1. ENALAPRIL MALEATE [Suspect]
     Indication: CARDIAC FAILURE
     Dosage: (0.4 MG/KG QD ORAL)
     Route: 048
  2. CARVEDILOL [Suspect]
     Indication: CARDIAC FAILURE
     Dosage: (0.5 MG/KG QD)
  3. PIMOBENDAN (PIMOBENDAN) [Suspect]
     Indication: DRUG USE FOR UNKNOWN INDICATION
     Dosage: (DF)

REACTIONS (10)
  - CARDIAC FAILURE [None]
  - CARDIAC MURMUR [None]
  - DISEASE PROGRESSION [None]
  - FACE OEDEMA [None]
  - GALLOP RHYTHM PRESENT [None]
  - HEPATOMEGALY [None]
  - MITRAL VALVE INCOMPETENCE [None]
  - PALLOR [None]
  - PNEUMONIA [None]
  - PULMONARY CONGESTION [None]
